FAERS Safety Report 7308339-7 (Version None)
Quarter: 2011Q1

REPORT INFORMATION
  Report Type: 
  Country: None (occurrence: None)
  Receive Date: 20110223
  Receipt Date: 20110217
  Transmission Date: 20110831
  Serious: Yes (Other)
  Sender: FDA-Public Use
  Company Number: B0698625A

PATIENT
  Age: 51 Year
  Sex: Female

DRUGS (1)
  1. SERETIDE DISKUS [Suspect]
     Route: 055
     Dates: start: 20110116

REACTIONS (3)
  - ASTHMA [None]
  - PRODUCT QUALITY ISSUE [None]
  - DRUG INEFFECTIVE [None]
